FAERS Safety Report 18079076 (Version 1)
Quarter: 2020Q3

REPORT INFORMATION
  Report Type: Spontaneous
  Country: US (occurrence: US)
  Receive Date: 20200727
  Receipt Date: 20200727
  Transmission Date: 20201103
  Serious: No
  Sender: FDA-Public Use
  Company Number: None

PATIENT
  Age: 43 Year
  Sex: Female
  Weight: 76.5 kg

DRUGS (5)
  1. LORATIDINE [Concomitant]
     Active Substance: LORATADINE
  2. CELEBRATE MULTIVITAMIN [Concomitant]
  3. VIT D [Concomitant]
     Active Substance: VITAMIN D NOS
  4. BIOTIN GUMMIES [Concomitant]
  5. BLUMEN ADVANCED HAND SANITIZER CLEAR [Suspect]
     Active Substance: ALCOHOL
     Indication: INFECTION PROPHYLAXIS
     Dosage: ?          OTHER STRENGTH:PUMPS;QUANTITY:2 PUMPS;?
     Route: 061
     Dates: start: 20200319, end: 20200717

REACTIONS (3)
  - Headache [None]
  - Recalled product administered [None]
  - Vision blurred [None]

NARRATIVE: CASE EVENT DATE: 20200717
